FAERS Safety Report 6377021-5 (Version None)
Quarter: 2009Q3

REPORT INFORMATION
  Report Type: 
  Country: None (occurrence: None)
  Receive Date: 20090925
  Receipt Date: 20090918
  Transmission Date: 20100115
  Serious: Yes (Other)
  Sender: FDA-Public Use
  Company Number: DE-JNJFOC-20041000543

PATIENT
  Sex: Female
  Weight: 102 kg

DRUGS (6)
  1. RISPERDAL [Suspect]
     Route: 048
  2. RISPERDAL [Suspect]
     Indication: PSYCHOTIC DISORDER
     Route: 048
  3. FLUOXETINE [Concomitant]
     Indication: DEPRESSION
     Route: 048
  4. DIAZEPAM [Concomitant]
     Indication: PANIC ATTACK
     Route: 048
  5. BIPERIDEN HYDROCHLORIDE TAB [Concomitant]
     Route: 065
  6. SERTRALINE HCL [Concomitant]
     Route: 065

REACTIONS (2)
  - BLEPHAROSPASM [None]
  - WEIGHT INCREASED [None]
